FAERS Safety Report 8896006 (Version 1)
Quarter: 2012Q4

REPORT INFORMATION
  Report Type: 
  Country: US (occurrence: US)
  Receive Date: 20121108
  Receipt Date: 20121108
  Transmission Date: 20130627
  Serious: Yes (Hospitalization, Other)
  Sender: FDA-Public Use
  Company Number: US-MPIJNJ-2012-07691

PATIENT
  Age: 62 Year
  Sex: Male
  Weight: 109.75 kg

DRUGS (2)
  1. VELCADE [Suspect]
     Indication: MULTIPLE MYELOMA
     Dosage: 3 mg, 2/week
     Route: 058
     Dates: start: 20110314, end: 20110418
  2. DOXIL [Suspect]
     Indication: MULTIPLE MYELOMA
     Dosage: 30 mg/m2, q3weeks
     Route: 042
     Dates: start: 20110318, end: 20110418

REACTIONS (4)
  - Clostridium difficile colitis [Unknown]
  - Pancytopenia [Unknown]
  - Sepsis syndrome [Unknown]
  - Renal failure acute [Unknown]
